FAERS Safety Report 13528954 (Version 1)
Quarter: 2017Q2

REPORT INFORMATION
  Report Type: Spontaneous
  Country: US (occurrence: US)
  Receive Date: 20170509
  Receipt Date: 20170509
  Transmission Date: 20170830
  Serious: No
  Sender: FDA-Public Use
  Company Number: US-ARALEZ PHARMACEUTICALS INC.-ARA-TP-US-2017-112

PATIENT
  Sex: Female
  Weight: 93.07 kg

DRUGS (12)
  1. OMEPRAZOLE. [Suspect]
     Active Substance: OMEPRAZOLE
     Indication: PRODUCT USED FOR UNKNOWN INDICATION
  2. OMEPRAZOLE. [Suspect]
     Active Substance: OMEPRAZOLE
     Indication: GASTROOESOPHAGEAL REFLUX DISEASE
     Dosage: 1 AT NIGHT
     Route: 048
  3. TRAMADOL. [Concomitant]
     Active Substance: TRAMADOL
     Indication: BACK PAIN
     Route: 048
  4. METOPROLOL SUCCINATE. [Suspect]
     Active Substance: METOPROLOL SUCCINATE
     Route: 048
  5. AZO CRANBERRY SUPPLEMENT [Concomitant]
     Indication: SUPPLEMENTATION THERAPY
     Route: 048
  6. ZOLPIDEM [Concomitant]
     Active Substance: ZOLPIDEM\ZOLPIDEM TARTRATE
     Indication: ANXIETY
     Route: 048
  7. TYLENOL [Concomitant]
     Active Substance: ACETAMINOPHEN
     Indication: PRODUCT USED FOR UNKNOWN INDICATION
     Route: 048
  8. METOPROLOL SUCCINATE. [Suspect]
     Active Substance: METOPROLOL SUCCINATE
     Indication: BLOOD PRESSURE MANAGEMENT
     Route: 048
  9. NEURONTIN [Concomitant]
     Active Substance: GABAPENTIN
     Indication: NEURALGIA
     Route: 048
  10. SYMBICORT [Suspect]
     Active Substance: BUDESONIDE\FORMOTEROL FUMARATE DIHYDRATE
     Indication: CHRONIC OBSTRUCTIVE PULMONARY DISEASE
     Dosage: 160/4.5 (2 PUFFS)
     Route: 055
     Dates: end: 201702
  11. SINGULAIR [Concomitant]
     Active Substance: MONTELUKAST SODIUM
     Indication: HYPERSENSITIVITY
     Route: 048
  12. ZOLPIDEM [Concomitant]
     Active Substance: ZOLPIDEM\ZOLPIDEM TARTRATE
     Indication: INSOMNIA

REACTIONS (16)
  - Amnesia [Recovered/Resolved]
  - Macular degeneration [Recovered/Resolved]
  - Dizziness [Recovered/Resolved]
  - Hypotension [Recovered/Resolved]
  - Glossodynia [Recovered/Resolved]
  - Nausea [Recovered/Resolved]
  - Blood pressure increased [Recovered/Resolved]
  - Memory impairment [Recovered/Resolved]
  - Asthenia [Recovered/Resolved]
  - Drug dose omission [Recovered/Resolved]
  - Vision blurred [Recovered/Resolved]
  - Intraocular pressure increased [Recovered/Resolved]
  - Eye movement disorder [Recovered/Resolved]
  - Fatigue [Recovered/Resolved]
  - Dyspnoea [Recovered/Resolved]
  - Emphysema [Recovered/Resolved]
